FAERS Safety Report 14787043 (Version 2)
Quarter: 2018Q2

REPORT INFORMATION
  Report Type: Spontaneous
  Country: US (occurrence: US)
  Receive Date: 20180420
  Receipt Date: 20180422
  Transmission Date: 20180711
  Serious: Yes (Hospitalization, Other)
  Sender: FDA-Public Use
  Company Number: US-APOTEX-2018AP011132

PATIENT
  Age: 16 Year
  Sex: Male

DRUGS (1)
  1. FENTANYL. [Suspect]
     Active Substance: FENTANYL
     Indication: PRODUCT USED FOR UNKNOWN INDICATION
     Dosage: UNK
     Route: 050

REACTIONS (10)
  - Respiration abnormal [Unknown]
  - Tinnitus [Unknown]
  - Unresponsive to stimuli [Recovering/Resolving]
  - Drug abuse [Unknown]
  - Tachycardia [Unknown]
  - Hyperhidrosis [Unknown]
  - Depressed level of consciousness [Recovering/Resolving]
  - Somnolence [Unknown]
  - Deafness neurosensory [Not Recovered/Not Resolved]
  - Cyanosis [Unknown]
